FAERS Safety Report 4469744-X (Version None)
Quarter: 2004Q3

REPORT INFORMATION
  Report Type: 
  Country: None (occurrence: None)
  Receive Date: 20040917
  Receipt Date: 20040606
  Transmission Date: 20050211
  Serious: Yes (Other)
  Sender: FDA-Public Use
  Company Number: PHEH2004US06273

PATIENT
  Age: 64 Year
  Sex: Female

DRUGS (2)
  1. FEMARA [Suspect]
     Indication: BREAST CANCER METASTATIC
     Dosage: 2.5 MG, QD
  2. ANTIHYPERTENSIVES [Concomitant]

REACTIONS (1)
  - DEEP VEIN THROMBOSIS [None]
